FAERS Safety Report 12419827 (Version 5)
Quarter: 2016Q3

REPORT INFORMATION
  Report Type: Report from Study
  Country: BR (occurrence: BR)
  Receive Date: 20160531
  Receipt Date: 20160928
  Transmission Date: 20161109
  Serious: Yes (Life-Threatening, Hospitalization, Other)
  Sender: FDA-Public Use
  Company Number: PHHY2016BR074396

PATIENT
  Age: 36 Year
  Sex: Female
  Weight: 54.5 kg

DRUGS (4)
  1. EXJADE [Suspect]
     Active Substance: DEFERASIROX
     Dosage: 10 MG/KG (1 DF OF 500 MG), QD
     Route: 048
     Dates: start: 20160602, end: 20160721
  2. HYDREA [Concomitant]
     Active Substance: HYDROXYUREA
     Indication: PRODUCT USED FOR UNKNOWN INDICATION
     Route: 065
  3. EXJADE [Suspect]
     Active Substance: DEFERASIROX
     Indication: SICKLE CELL ANAEMIA
     Dosage: 10 MG/KG (2 DF OF 250 MG), QD
     Route: 048
  4. FOLIC ACID. [Concomitant]
     Active Substance: FOLIC ACID
     Indication: PRODUCT USED FOR UNKNOWN INDICATION
     Route: 065

REACTIONS (30)
  - Blood iron increased [Unknown]
  - Dyspepsia [Unknown]
  - Anuria [Recovered/Resolved]
  - Hypersensitivity [Recovering/Resolving]
  - Mass [Unknown]
  - Swelling [Recovered/Resolved]
  - Skin discolouration [Not Recovered/Not Resolved]
  - Skin exfoliation [Recovering/Resolving]
  - Decreased appetite [Unknown]
  - Fatigue [Recovering/Resolving]
  - Arthralgia [Recovering/Resolving]
  - Muscular weakness [Recovering/Resolving]
  - Retching [Unknown]
  - Weight increased [Recovered/Resolved]
  - Constipation [Recovered/Resolved]
  - Abasia [Recovered/Resolved]
  - Renal pain [Recovering/Resolving]
  - Back pain [Unknown]
  - Asthenia [Unknown]
  - Malaise [Unknown]
  - Cerebrovascular accident [Recovered/Resolved]
  - Sickle cell anaemia with crisis [Recovered/Resolved]
  - Dry skin [Not Recovered/Not Resolved]
  - Pruritus generalised [Unknown]
  - Apparent death [Recovered/Resolved]
  - Multiple organ dysfunction syndrome [Recovered/Resolved]
  - Renal injury [Recovered/Resolved]
  - Pruritus [Unknown]
  - Abdominal distension [Unknown]
  - Feeling abnormal [Unknown]

NARRATIVE: CASE EVENT DATE: 201404
